FAERS Safety Report 23046614 (Version 1)
Quarter: 2023Q4

REPORT INFORMATION
  Report Type: Spontaneous
  Country: BR (occurrence: BR)
  Receive Date: 20231009
  Receipt Date: 20231009
  Transmission Date: 20240110
  Serious: Yes (Other)
  Sender: FDA-Public Use
  Company Number: BR-AMGEN-BRASP2023177449

PATIENT

DRUGS (1)
  1. PROLIA [Suspect]
     Active Substance: DENOSUMAB
     Indication: Osteoporosis
     Dosage: 60 MILLIGRAM/ML, Q6MO
     Route: 058

REACTIONS (5)
  - Hip fracture [Unknown]
  - Fracture [Unknown]
  - Periodontal disease [Unknown]
  - Treatment noncompliance [Unknown]
  - Tooth loss [Unknown]
